FAERS Safety Report 14601635 (Version 2)
Quarter: 2018Q2

REPORT INFORMATION
  Report Type: Report from Study
  Country: CA (occurrence: CA)
  Receive Date: 20180306
  Receipt Date: 20180403
  Transmission Date: 20180711
  Serious: Yes (Other)
  Sender: FDA-Public Use
  Company Number: CA-BRISTOL-MYERS SQUIBB COMPANY-BMS-2017-098475

PATIENT
  Age: 62 Year
  Sex: Female

DRUGS (1)
  1. ABATACEPT [Suspect]
     Active Substance: ABATACEPT
     Indication: RHEUMATOID ARTHRITIS
     Dosage: 750 MG, Q4WK
     Route: 042

REACTIONS (9)
  - Neoplasm malignant [Recovering/Resolving]
  - Nasopharyngitis [Unknown]
  - Diarrhoea [Recovering/Resolving]
  - Injection site bruising [Unknown]
  - Cough [Not Recovered/Not Resolved]
  - Poor venous access [Not Recovered/Not Resolved]
  - Erythema [Unknown]
  - Vein disorder [Unknown]
  - Arthralgia [Unknown]

NARRATIVE: CASE EVENT DATE: 20180101
